FAERS Safety Report 20975694 (Version 1)
Quarter: 2022Q2

REPORT INFORMATION
  Report Type: Spontaneous
  Country: UZ (occurrence: UZ)
  Receive Date: 20220617
  Receipt Date: 20220617
  Transmission Date: 20220721
  Serious: Yes (Death, Hospitalization, Other)
  Sender: FDA-Public Use
  Company Number: UZ-JNJFOC-20220308012

PATIENT
  Age: 63 Year
  Sex: Male
  Weight: 72 kg

DRUGS (19)
  1. SIRTURO [Suspect]
     Active Substance: BEDAQUILINE FUMARATE
     Indication: Tuberculosis
     Dosage: MONDAY, WEDNESDAY, FRIDAY
     Route: 048
     Dates: start: 20210616, end: 20211018
  2. SIRTURO [Suspect]
     Active Substance: BEDAQUILINE FUMARATE
     Route: 048
     Dates: start: 20211101, end: 20211124
  3. SIRTURO [Suspect]
     Active Substance: BEDAQUILINE FUMARATE
     Route: 048
     Dates: start: 20220120, end: 20220525
  4. LEVOFLOXACIN [Suspect]
     Active Substance: LEVOFLOXACIN
     Indication: Tuberculosis
     Route: 048
     Dates: start: 20210616, end: 20210715
  5. CLOFAZIMINE [Suspect]
     Active Substance: CLOFAZIMINE
     Indication: Tuberculosis
     Route: 048
     Dates: start: 20210616, end: 20211018
  6. CLOFAZIMINE [Suspect]
     Active Substance: CLOFAZIMINE
     Route: 048
     Dates: start: 20211101, end: 20211124
  7. CLOFAZIMINE [Suspect]
     Active Substance: CLOFAZIMINE
     Route: 048
     Dates: start: 20220120, end: 20220525
  8. DELAMANID [Suspect]
     Active Substance: DELAMANID
     Indication: Tuberculosis
     Route: 048
     Dates: start: 20210616, end: 20211018
  9. DELAMANID [Suspect]
     Active Substance: DELAMANID
     Route: 048
     Dates: start: 20211101, end: 20211123
  10. DELAMANID [Suspect]
     Active Substance: DELAMANID
     Route: 048
     Dates: start: 20220124, end: 20220525
  11. CYCLOSERINE [Suspect]
     Active Substance: CYCLOSERINE
     Indication: Tuberculosis
     Route: 048
     Dates: start: 20210616, end: 20211018
  12. CYCLOSERINE [Suspect]
     Active Substance: CYCLOSERINE
     Route: 048
     Dates: start: 20211101, end: 20211124
  13. CYCLOSERINE [Suspect]
     Active Substance: CYCLOSERINE
     Route: 048
     Dates: start: 20220203, end: 20220525
  14. IMIPENEM [Suspect]
     Active Substance: IMIPENEM
     Indication: Tuberculosis
     Dosage: MON-SAT
     Route: 041
     Dates: start: 20210616, end: 20210813
  15. IMIPENEM [Suspect]
     Active Substance: IMIPENEM
     Dosage: MON-SAT
     Route: 041
     Dates: start: 20210923, end: 20211018
  16. IMIPENEM [Suspect]
     Active Substance: IMIPENEM
     Dosage: MON-SAT
     Route: 041
     Dates: start: 20211027, end: 20211123
  17. AMOXICILLIN\CLAVULANIC ACID [Suspect]
     Active Substance: AMOXICILLIN\CLAVULANIC ACID
     Indication: Tuberculosis
     Dosage: MON-SAT
     Route: 048
     Dates: start: 20210616, end: 20210813
  18. AMOXICILLIN\CLAVULANIC ACID [Suspect]
     Active Substance: AMOXICILLIN\CLAVULANIC ACID
     Route: 048
     Dates: start: 20210923, end: 20211018
  19. AMOXICILLIN\CLAVULANIC ACID [Suspect]
     Active Substance: AMOXICILLIN\CLAVULANIC ACID
     Route: 048
     Dates: start: 20211027, end: 20211123

REACTIONS (5)
  - Pulmonary embolism [Fatal]
  - Multiple organ dysfunction syndrome [Fatal]
  - Vertebrobasilar insufficiency [Unknown]
  - Hypertension [Unknown]
  - Anaemia [Recovering/Resolving]

NARRATIVE: CASE EVENT DATE: 20220125
